FAERS Safety Report 7785838-5 (Version None)
Quarter: 2011Q3

REPORT INFORMATION
  Report Type: 
  Country: None (occurrence: None)
  Receive Date: 20110929
  Receipt Date: 20110919
  Transmission Date: 20111222
  Serious: Yes (Hospitalization, Other)
  Sender: FDA-Public Use
  Company Number: US-BAYER-2011-013980

PATIENT
  Age: 27 Year
  Sex: Female

DRUGS (5)
  1. DICYCLOMINE [Concomitant]
     Dosage: 10 MG, TID
     Route: 048
  2. METRONIDAZOLE [Concomitant]
     Dosage: 500 MG, BID
  3. VITAMIN TAB [Concomitant]
  4. YAZ [Suspect]
     Dosage: UNK
     Route: 048
     Dates: start: 20080101, end: 20090101
  5. CIPROFLOXACIN [Concomitant]
     Dosage: 500 MG, BID
     Route: 048

REACTIONS (3)
  - CHOLECYSTITIS [None]
  - PAIN [None]
  - GALLBLADDER NON-FUNCTIONING [None]
